FAERS Safety Report 9092719 (Version 1)
Quarter: 2013Q1

REPORT INFORMATION
  Report Type: Report from Study
  Country: US (occurrence: US)
  Receive Date: 20130201
  Receipt Date: 20130201
  Transmission Date: 20140127
  Serious: No
  Sender: FDA-Public Use
  Company Number: US-ABBOTT-13P-163-1031245-00

PATIENT
  Age: 54 Year
  Sex: Female
  Weight: 86.26 kg

DRUGS (5)
  1. HUMIRA [Suspect]
     Indication: PSORIASIS
     Route: 058
     Dates: start: 20120916
  2. HUMIRA [Suspect]
     Indication: PSORIATIC ARTHROPATHY
  3. CRANBERRY [Concomitant]
     Indication: PROPHYLAXIS
  4. CRANBERRY [Concomitant]
     Indication: COUGH
  5. VITAMIN D [Concomitant]
     Indication: PRODUCT USED FOR UNKNOWN INDICATION

REACTIONS (5)
  - Feeling hot [Not Recovered/Not Resolved]
  - Rash [Not Recovered/Not Resolved]
  - Psoriasis [Not Recovered/Not Resolved]
  - Flushing [Not Recovered/Not Resolved]
  - Night sweats [Not Recovered/Not Resolved]
